FAERS Safety Report 15947918 (Version 7)
Quarter: 2019Q4

REPORT INFORMATION
  Report Type: Report from Study
  Country: US (occurrence: US)
  Receive Date: 20190211
  Receipt Date: 20191011
  Transmission Date: 20200122
  Serious: Yes (Hospitalization)
  Sender: FDA-Public Use
  Company Number: US-ACTELION-A-NJ2017-151221

PATIENT
  Age: 45 Year
  Sex: Female
  Weight: 61.68 kg

DRUGS (11)
  1. OPSUMIT [Suspect]
     Active Substance: MACITENTAN
     Indication: PULMONARY ARTERIAL HYPERTENSION
     Dosage: UNK
     Route: 048
     Dates: start: 20140408
  2. DIGOXIN. [Suspect]
     Active Substance: DIGOXIN
     Indication: PRODUCT USED FOR UNKNOWN INDICATION
     Route: 065
  3. SILDENAFIL CITRATE. [Concomitant]
     Active Substance: SILDENAFIL CITRATE
  4. VELETRI [Suspect]
     Active Substance: EPOPROSTENOL
     Dosage: 15 NG/KG, PER MIN
     Route: 042
  5. VELETRI [Suspect]
     Active Substance: EPOPROSTENOL
     Dosage: 16 NG
     Route: 042
  6. COUMADIN [Concomitant]
     Active Substance: WARFARIN SODIUM
  7. VELETRI [Suspect]
     Active Substance: EPOPROSTENOL
     Indication: PULMONARY ARTERIAL HYPERTENSION
     Dosage: 21 NG/KG, PER MIN
     Route: 042
  8. VELETRI [Suspect]
     Active Substance: EPOPROSTENOL
     Dosage: 17 NG/KG, PER MIN
     Route: 042
  9. OPSUMIT [Suspect]
     Active Substance: MACITENTAN
     Dosage: 10 MG, QD
     Route: 048
     Dates: start: 20161030
  10. VELETRI [Suspect]
     Active Substance: EPOPROSTENOL
     Dosage: 21 NG/KG, PER MIN
     Route: 042
  11. PROPRANOLOL [Concomitant]
     Active Substance: PROPRANOLOL HYDROCHLORIDE

REACTIONS (26)
  - Nausea [Recovering/Resolving]
  - Hospitalisation [Unknown]
  - Headache [Unknown]
  - Product administration error [Unknown]
  - Orthopnoea [Unknown]
  - Dyspnoea exertional [Unknown]
  - Dyspnoea [Unknown]
  - Catheter site erythema [Unknown]
  - Catheter site pruritus [Unknown]
  - Cardiac output decreased [Unknown]
  - Vomiting [Recovering/Resolving]
  - Erythema [Recovering/Resolving]
  - Device related infection [Unknown]
  - Application site irritation [Unknown]
  - Catheter site discharge [Unknown]
  - Catheter site pain [Unknown]
  - Hot flush [Recovered/Resolved]
  - Fatigue [Unknown]
  - Flushing [Unknown]
  - Atrioventricular block [Unknown]
  - Hypersensitivity [Unknown]
  - Device malfunction [Recovered/Resolved]
  - Cardiac output increased [Unknown]
  - Arrhythmia [Unknown]
  - Adverse event [Unknown]
  - Toxicity to various agents [Unknown]

NARRATIVE: CASE EVENT DATE: 201901
